FAERS Safety Report 23960093 (Version 1)
Quarter: 2024Q2

REPORT INFORMATION
  Report Type: Spontaneous
  Country: IN (occurrence: IN)
  Receive Date: 20240611
  Receipt Date: 20240611
  Transmission Date: 20240715
  Serious: Yes (Hospitalization, Other)
  Sender: FDA-Public Use
  Company Number: IN-NOVAST LABORATORIES INC.-2024NOV000252

PATIENT
  Age: 63 Year
  Sex: Female

DRUGS (2)
  1. CARBOPLATIN [Suspect]
     Active Substance: CARBOPLATIN
     Indication: Breast cancer
     Dosage: 700 MILLIGRAM
     Route: 065
  2. PACLITAXEL [Concomitant]
     Active Substance: PACLITAXEL
     Indication: Breast cancer
     Dosage: 250 MILLIGRAM
     Route: 065

REACTIONS (4)
  - Acute kidney injury [Recovered/Resolved]
  - Ureteric obstruction [Recovered/Resolved]
  - Haematuria [Recovered/Resolved]
  - Product use in unapproved indication [Unknown]
